FAERS Safety Report 9539218 (Version 1)
Quarter: 2013Q2

REPORT INFORMATION
  Report Type: Spontaneous
  Country: US (occurrence: None)
  Receive Date: 20130521
  Receipt Date: 20130521
  Transmission Date: 20140414
  Serious: No
  Sender: FDA-Public Use
  Company Number: 1000043347

PATIENT
  Age: 87 Year
  Sex: Female

DRUGS (14)
  1. TUDORZA PRESSAIR [Suspect]
     Indication: DYSPNOEA
     Dosage: 400 MCG 2 IN 1 D
     Route: 048
     Dates: start: 201302
  2. VITAMIN D (VITAMIN D) (VITAMIN D) [Concomitant]
  3. CALCIUM (CALCIUM) (CALCIUM) [Concomitant]
  4. ADVAIR (SERTIDE)(SERTIDE) [Concomitant]
  5. ASPIRIN (ACETYLSALICYLIC ACID) (ACEYTLSALCYLIC ACID) [Concomitant]
  6. LASIX (FUROSEMIDE) (FUROSEMIDE) [Concomitant]
  7. KLOR-CON (POTASSIUM CHLORDE) (POTASSIUM CHLORIDE) [Concomitant]
  8. GLUCOPHAGE  (METFORMIN HYDROCHLORIDE) (METFORMIN HYDROCHLORIDE) [Concomitant]
  9. DEXILANT (DEXLANSOPRAZOLE) (DEXLANPRAZOLE) [Concomitant]
  10. PROCARDIA (NIFEDIPINE) (NIFEDIPINE) [Concomitant]
  11. PRAVASTATIN (PRAVASTATIN)(PRAVASTATIN) [Concomitant]
  12. MIRALAX (POLYETHEYLENE GLYCOL) (POLYETHYLENE GLYCOL) [Concomitant]
  13. METOPROLOL (METOPROLOL) (METOPROLOL) [Concomitant]
  14. PROLIA [Suspect]

REACTIONS (3)
  - Decreased appetite [None]
  - Abdominal distension [None]
  - Off label use [None]
